FAERS Safety Report 21765320 (Version 2)
Quarter: 2022Q4

REPORT INFORMATION
  Report Type: Report from Study
  Country: CN (occurrence: CN)
  Receive Date: 20221222
  Receipt Date: 20221226
  Transmission Date: 20230112
  Serious: Yes (Life-Threatening, Hospitalization, Other)
  Sender: FDA-Public Use
  Company Number: CN-BoehringerIngelheim-2021-BI-145685

PATIENT
  Age: 69 Year
  Sex: Female
  Weight: 55 kg

DRUGS (8)
  1. ALTEPLASE [Suspect]
     Active Substance: ALTEPLASE
     Indication: Ischaemic stroke
     Route: 042
     Dates: start: 20211222, end: 20211222
  2. VITAMIN C [Suspect]
     Active Substance: ASCORBIC ACID
     Indication: Prophylaxis
     Dosage: IV GTT,
     Route: 042
     Dates: start: 20211224, end: 20211226
  3. VITAMIN B6 [Suspect]
     Active Substance: PYRIDOXINE HYDROCHLORIDE
     Indication: Prophylaxis
     Dosage: IV GTT,
     Route: 042
     Dates: start: 20211224, end: 20211226
  4. METFORMIN HYDROCHLORIDE [Concomitant]
     Active Substance: METFORMIN HYDROCHLORIDE
     Indication: Hypoglycaemia
     Dosage: CONT
     Dates: start: 2000
  5. GLIMEPIRIDE [Concomitant]
     Active Substance: GLIMEPIRIDE
     Indication: Hypoglycaemia
     Dosage: CONT
     Route: 048
     Dates: start: 2000
  6. ASPIRIN [Concomitant]
     Active Substance: ASPIRIN
     Indication: Ischaemic stroke
     Route: 048
     Dates: start: 20211224, end: 20211230
  7. CLOPIDOGREL BISULFATE [Concomitant]
     Active Substance: CLOPIDOGREL BISULFATE
     Indication: Ischaemic stroke
     Route: 048
     Dates: start: 20211224, end: 20211230
  8. AGGRASTAT [Concomitant]
     Active Substance: TIROFIBAN HYDROCHLORIDE
     Indication: Ischaemic stroke
     Dosage: ROA: IV GTT
     Route: 042
     Dates: start: 20211224, end: 20211225

REACTIONS (7)
  - Shock haemorrhagic [Not Recovered/Not Resolved]
  - Carotid artery occlusion [Not Recovered/Not Resolved]
  - Cardiac failure [Not Recovered/Not Resolved]
  - Gastrointestinal haemorrhage [Recovered/Resolved]
  - Anaemia [Not Recovered/Not Resolved]
  - Hyperglycaemic hyperosmolar nonketotic syndrome [Not Recovered/Not Resolved]
  - Cerebral artery occlusion [Unknown]

NARRATIVE: CASE EVENT DATE: 20211224
